FAERS Safety Report 14061686 (Version 2)
Quarter: 2017Q4

REPORT INFORMATION
  Report Type: Spontaneous
  Country: JP (occurrence: JP)
  Receive Date: 20171009
  Receipt Date: 20171130
  Transmission Date: 20180321
  Serious: Yes (Other)
  Sender: FDA-Public Use
  Company Number: JP-ROCHE-2001574

PATIENT
  Age: 78 Year
  Sex: Female

DRUGS (2)
  1. BONVIVA [Suspect]
     Active Substance: IBANDRONATE SODIUM
     Indication: PRODUCT USED FOR UNKNOWN INDICATION
     Dosage: DOSAGE IS UNCERTAIN.?MOST RECENT DOSE ON 08/SEP/2017
     Route: 042
     Dates: start: 20170707
  2. ONEALFA [Concomitant]
     Active Substance: ALFACALCIDOL
     Dosage: DOSAGE IS UNCERTAIN.
     Route: 048
     Dates: start: 20130726

REACTIONS (4)
  - Infusion site extravasation [Recovering/Resolving]
  - Swelling [Recovered/Resolved]
  - Erythema [Recovered/Resolved]
  - Mass [Recovering/Resolving]

NARRATIVE: CASE EVENT DATE: 201709
